FAERS Safety Report 10836611 (Version 1)
Quarter: 2015Q1

REPORT INFORMATION
  Report Type: Other
  Country: GB (occurrence: GB)
  Receive Date: 20150219
  Receipt Date: 20150219
  Transmission Date: 20150721
  Serious: Yes (Disabling, Other)
  Sender: FDA-Public Use
  Company Number: GB-MYLANLABS-2015M1003848

PATIENT

DRUGS (11)
  1. SIMVASTATIN. [Concomitant]
     Active Substance: SIMVASTATIN
  2. MYCOPHENOLATE MOFETIL. [Suspect]
     Active Substance: MYCOPHENOLATE MOFETIL
     Indication: IMMUNOSUPPRESSION
     Dosage: 250MG INCREASING OVER TIME TO MAXIMUM 1250MG DAILY
     Route: 048
     Dates: start: 20070619
  3. BECLOMETASONE [Concomitant]
     Active Substance: BECLOMETHASONE DIPROPIONATE
  4. CALCICHEW [Concomitant]
     Active Substance: CALCIUM CARBONATE
  5. PREDNISOLONE. [Concomitant]
     Active Substance: PREDNISOLONE
  6. ALFACALCIDOL [Concomitant]
     Active Substance: ALFACALCIDOL
  7. LANSOPRAZOLE. [Concomitant]
     Active Substance: LANSOPRAZOLE
  8. ALLOPURINOL. [Concomitant]
     Active Substance: ALLOPURINOL
  9. SALBUTAMOL [Concomitant]
     Active Substance: ALBUTEROL
  10. AMLODIPINE [Concomitant]
     Active Substance: AMLODIPINE BESYLATE
  11. PROGRAF [Concomitant]
     Active Substance: TACROLIMUS\TACROLIMUS ANHYDROUS

REACTIONS (6)
  - Condition aggravated [Unknown]
  - Abnormal loss of weight [Recovering/Resolving]
  - Bronchiectasis [Recovering/Resolving]
  - Blood immunoglobulin M decreased [Unknown]
  - Lower respiratory tract infection [Recovering/Resolving]
  - Polyp [Unknown]

NARRATIVE: CASE EVENT DATE: 20071001
